FAERS Safety Report 5026596-7 (Version None)
Quarter: 2006Q2

REPORT INFORMATION
  Report Type: 
  Country: None (occurrence: None)
  Receive Date: 20060426
  Receipt Date: 20060308
  Transmission Date: 20061013
  Serious: Yes (Other)
  Sender: FDA-Public Use
  Company Number: 2006034372

PATIENT
  Age: 37 Year
  Sex: Male
  Weight: 84.369 kg

DRUGS (3)
  1. LYRICA [Suspect]
     Indication: NEURALGIA
     Dosage: 50 MG (50 MG, 1 IN 1 D)
     Dates: start: 20060307
  2. OXYCODONE HCL [Concomitant]
  3. ASPIRIN [Concomitant]

REACTIONS (1)
  - SOMNOLENCE [None]
